FAERS Safety Report 17009429 (Version 1)
Quarter: 2019Q4

REPORT INFORMATION
  Report Type: Spontaneous
  Country: US (occurrence: US)
  Receive Date: 20190930
  Receipt Date: 20190930
  Transmission Date: 20200122
  Serious: No
  Sender: FDA-Public Use
  Company Number: None

PATIENT
  Age: 78 Year
  Sex: Female

DRUGS (20)
  1. CRANBERRY. [Concomitant]
     Active Substance: CRANBERRY
  2. ASPIRIN. [Concomitant]
     Active Substance: ASPIRIN
  3. PROLIA [Suspect]
     Active Substance: DENOSUMAB
     Indication: OSTEOARTHRITIS
     Dosage: ?          OTHER FREQUENCY:EVERY 6 MONTHS;?
     Route: 058
     Dates: start: 20180413
  4. PREDNISONE. [Concomitant]
     Active Substance: PREDNISONE
  5. PROLIA [Suspect]
     Active Substance: DENOSUMAB
     Indication: OSTEOPOROSIS
     Dosage: ?          OTHER FREQUENCY:EVERY 6 MONTHS;?
     Route: 058
     Dates: start: 20180413
  6. METOPROLOL TAB [Concomitant]
  7. GABAPENTIN. [Concomitant]
     Active Substance: GABAPENTIN
  8. HEMANTINE HCL [Concomitant]
  9. TRAMADOL HCL [Concomitant]
     Active Substance: TRAMADOL HYDROCHLORIDE
  10. LOSARTAN POT TAB [Concomitant]
  11. METHOTREXATE. [Concomitant]
     Active Substance: METHOTREXATE
  12. ATORVASTATIN CALCIUM. [Concomitant]
     Active Substance: ATORVASTATIN CALCIUM
  13. GINKGO BILOB CAP [Concomitant]
  14. REVLIMID [Concomitant]
     Active Substance: LENALIDOMIDE
  15. GOODSENSE ASPIRIN [Concomitant]
  16. CITALOPRAM TAB [Concomitant]
  17. CENTRUM [Concomitant]
     Active Substance: VITAMINS
  18. FISH OIL [Concomitant]
     Active Substance: FISH OIL
  19. PRILOSEC [Concomitant]
     Active Substance: OMEPRAZOLE MAGNESIUM
  20. FOLIC ACID. [Concomitant]
     Active Substance: FOLIC ACID

REACTIONS (2)
  - Plasma cell myeloma [None]
  - Haematological malignancy [None]
